FAERS Safety Report 10366024 (Version 2)
Quarter: 2014Q4

REPORT INFORMATION
  Report Type: Report from Study
  Country: JP (occurrence: JP)
  Receive Date: 20140806
  Receipt Date: 20141014
  Transmission Date: 20150528
  Serious: Yes (Other)
  Sender: FDA-Public Use
  Company Number: JP-GLAXOSMITHKLINE-B0984357A

PATIENT
  Age: 52 Year
  Sex: Female
  Weight: 44 kg

DRUGS (16)
  1. TYKERB [Suspect]
     Active Substance: LAPATINIB DITOSYLATE
     Route: 048
     Dates: start: 20131204, end: 20140119
  2. METHYCOBAL [Concomitant]
     Active Substance: METHYLCOBALAMIN
     Indication: NEUROPATHY PERIPHERAL
     Route: 048
     Dates: start: 20120620, end: 20130119
  3. TYKERB [Suspect]
     Active Substance: LAPATINIB DITOSYLATE
     Indication: BREAST CANCER
     Route: 048
     Dates: start: 20130507, end: 20131022
  4. XELODA [Suspect]
     Active Substance: CAPECITABINE
     Route: 048
     Dates: start: 20131204, end: 20140119
  5. XELODA [Suspect]
     Active Substance: CAPECITABINE
     Dosage: UNK
  6. OXYCONTIN [Concomitant]
     Active Substance: OXYCODONE HYDROCHLORIDE
     Indication: BONE PAIN
     Route: 048
     Dates: start: 20121024, end: 20130702
  7. TRANSAMIN [Concomitant]
     Active Substance: TRANEXAMIC ACID
     Indication: PIGMENTATION DISORDER
     Route: 048
     Dates: start: 20120822, end: 20130119
  8. CAPECITABINE. [Concomitant]
     Active Substance: CAPECITABINE
     Dosage: 2400 MG, CYC
     Dates: start: 20131204, end: 20140119
  9. XELODA [Suspect]
     Active Substance: CAPECITABINE
     Indication: BREAST CANCER
     Route: 048
     Dates: start: 20130507, end: 20130618
  10. DEPAS [Concomitant]
     Active Substance: ETIZOLAM
     Indication: INSOMNIA
     Route: 048
     Dates: start: 20130502, end: 20130618
  11. MAGLAX [Concomitant]
     Active Substance: MAGNESIUM OXIDE
     Indication: CONSTIPATION
     Route: 048
     Dates: start: 20120620, end: 20130115
  12. NO DRUG NAME [Concomitant]
     Indication: BREAST CANCER
     Dosage: UNK
     Dates: start: 20140326
  13. TYKERB [Suspect]
     Active Substance: LAPATINIB DITOSYLATE
     Route: 048
     Dates: start: 20131023, end: 20131203
  14. XELODA [Suspect]
     Active Substance: CAPECITABINE
     Route: 048
     Dates: start: 20130619, end: 20131022
  15. XELODA [Suspect]
     Active Substance: CAPECITABINE
     Route: 048
     Dates: start: 20131023, end: 20131203
  16. CAPECITABINE. [Concomitant]
     Active Substance: CAPECITABINE
     Indication: PALMAR-PLANTAR ERYTHRODYSAESTHESIA SYNDROME
     Dosage: 2400 MG, CYC
     Dates: end: 20131203

REACTIONS (3)
  - Cardiac failure [Recovered/Resolved]
  - Diarrhoea [Recovering/Resolving]
  - Palmar-plantar erythrodysaesthesia syndrome [Not Recovered/Not Resolved]

NARRATIVE: CASE EVENT DATE: 20130522
